FAERS Safety Report 7777799-X (Version None)
Quarter: 2011Q3

REPORT INFORMATION
  Report Type: 
  Country: None (occurrence: None)
  Receive Date: 20110926
  Receipt Date: 20110915
  Transmission Date: 20111222
  Serious: No
  Sender: FDA-Public Use
  Company Number: US-BIOGENIDEC-2011BI006601

PATIENT
  Sex: Female

DRUGS (3)
  1. BENADRYL [Concomitant]
     Indication: PREMEDICATION
     Dates: start: 20090710
  2. TYSABRI [Suspect]
     Indication: MULTIPLE SCLEROSIS
     Route: 042
     Dates: start: 20090710
  3. TYLENOL-500 [Concomitant]
     Indication: PREMEDICATION
     Dates: start: 20090710

REACTIONS (6)
  - DEAFNESS UNILATERAL [None]
  - DEPRESSION [None]
  - DEAFNESS [None]
  - CONTUSION [None]
  - SUDDEN HEARING LOSS [None]
  - MOOD SWINGS [None]
